FAERS Safety Report 7720510-9 (Version None)
Quarter: 2011Q3

REPORT INFORMATION
  Report Type: 
  Country: None (occurrence: None)
  Receive Date: 20110831
  Receipt Date: 20110822
  Transmission Date: 20111222
  Serious: Yes (Hospitalization)
  Sender: FDA-Public Use
  Company Number: JP-ASTRAZENECA-2011SE48806

PATIENT
  Age: 61 Year
  Sex: Male
  Weight: 53 kg

DRUGS (26)
  1. LOXONIN [Concomitant]
     Indication: PAIN PROPHYLAXIS
     Dosage: DOSE UNKNOWN, AS REQUIRED
     Route: 048
     Dates: start: 20101105, end: 20101112
  2. CLARITHROMYCIN [Concomitant]
     Dosage: DOSE UNKNOWN
     Route: 048
     Dates: start: 20110603, end: 20110608
  3. CLARITHROMYCIN [Concomitant]
     Dosage: DOSE UNKNOWN
     Route: 048
     Dates: start: 20110603, end: 20110608
  4. NORVASC [Concomitant]
     Indication: HYPERTENSION
     Route: 048
  5. CLARITHROMYCIN [Concomitant]
     Dosage: DOSE UNKNOWN
     Route: 048
     Dates: start: 20110411, end: 20110418
  6. SPIRIVA [Concomitant]
     Indication: CHRONIC OBSTRUCTIVE PULMONARY DISEASE
     Route: 055
     Dates: start: 20100928
  7. DEXTROMETHORPHAN HYDROBROMIDE [Concomitant]
     Indication: UPPER RESPIRATORY TRACT INFECTION
     Dosage: DOSE UNKNOWN
     Route: 048
     Dates: start: 20110315, end: 20110322
  8. DEXTROMETHORPHAN HYDROBROMIDE [Concomitant]
     Dosage: DOSE UNKNOWN
     Route: 048
     Dates: start: 20110411, end: 20110418
  9. DEXTROMETHORPHAN HYDROBROMIDE [Concomitant]
     Dosage: DOSE UNKNOWN
     Route: 048
     Dates: start: 20110603, end: 20110608
  10. MUCODYNE [Concomitant]
     Dosage: DOSE UNKNOWN
     Route: 048
     Dates: start: 20110411, end: 20110418
  11. DEXTROMETHORPHAN HYDROBROMIDE [Concomitant]
     Dosage: DOSE UNKNOWN
     Route: 048
     Dates: start: 20110411, end: 20110418
  12. CLARITHROMYCIN [Concomitant]
     Indication: NASOPHARYNGITIS
     Dosage: DOSE UNKNOWN
     Route: 048
     Dates: start: 20110315, end: 20110322
  13. CLARITHROMYCIN [Concomitant]
     Indication: UPPER RESPIRATORY TRACT INFECTION
     Dosage: DOSE UNKNOWN
     Route: 048
     Dates: start: 20110315, end: 20110322
  14. INFLUENZA HA VACCINE [Concomitant]
     Indication: ANTIVIRAL PROPHYLAXIS
     Route: 058
     Dates: start: 20101031, end: 20101031
  15. DEXTROMETHORPHAN HYDROBROMIDE [Concomitant]
     Indication: NASOPHARYNGITIS
     Dosage: DOSE UNKNOWN
     Route: 048
     Dates: start: 20110315, end: 20110322
  16. DEXTROMETHORPHAN HYDROBROMIDE [Concomitant]
     Dosage: DOSE UNKNOWN
     Route: 048
     Dates: start: 20110603, end: 20110608
  17. CLARITHROMYCIN [Concomitant]
     Dosage: DOSE UNKNOWN
     Route: 048
     Dates: start: 20110411, end: 20110418
  18. MUCODYNE [Concomitant]
     Indication: NASOPHARYNGITIS
     Dosage: DOSE UNKNOWN
     Route: 048
     Dates: start: 20110315, end: 20110322
  19. SINGULAIR [Concomitant]
     Dosage: DOSE UNKNOWN
     Route: 048
     Dates: start: 20110411, end: 20110418
  20. ASTOMIN [Concomitant]
     Indication: UPPER RESPIRATORY TRACT INFECTION
     Dosage: DOSE UNKNOWN
     Route: 048
     Dates: start: 20110615, end: 20110619
  21. LEVOFLOXACIN [Concomitant]
     Indication: UPPER RESPIRATORY TRACT INFECTION
     Dosage: DOSE UNKNOWN
     Route: 048
     Dates: start: 20110615, end: 20110619
  22. SINGULAIR [Concomitant]
     Indication: NASOPHARYNGITIS
     Dosage: DOSE UNKNOWN
     Route: 048
     Dates: start: 20110315, end: 20110322
  23. AMBROXOL HYDROCHLORIDE [Concomitant]
     Indication: UPPER RESPIRATORY TRACT INFECTION
     Dosage: DOSE UNKNOWN
     Route: 048
     Dates: start: 20110615, end: 20110619
  24. SYMBICORT [Suspect]
     Indication: CHRONIC OBSTRUCTIVE PULMONARY DISEASE
     Dosage: 160/4.5 UG TWO INHALATION TWO TIMES A DAY
     Route: 055
     Dates: start: 20101019, end: 20110811
  25. ALBUTEROL SULFATE [Concomitant]
     Indication: CHRONIC OBSTRUCTIVE PULMONARY DISEASE
     Dosage: DOSE UNKNOWN, AS REQUIRED
     Route: 055
     Dates: start: 20100601
  26. LEXOTAN [Concomitant]
     Indication: NEUROSIS
     Route: 048

REACTIONS (2)
  - PNEUMONIA [None]
  - CHRONIC OBSTRUCTIVE PULMONARY DISEASE [None]
